FAERS Safety Report 6152764-7 (Version None)
Quarter: 2009Q2

REPORT INFORMATION
  Report Type: 
  Country: None (occurrence: None)
  Receive Date: 20090409
  Receipt Date: 20090331
  Transmission Date: 20091009
  Serious: Yes (Other)
  Sender: FDA-Public Use
  Company Number: 2009SP003832

PATIENT
  Age: 55 Year
  Sex: Female
  Weight: 84.8226 kg

DRUGS (2)
  1. PEG-INTRON [Suspect]
     Indication: HEPATITIS C
     Dosage: SC
     Route: 058
  2. RIBAVIRIN [Suspect]
     Indication: HEPATITIS C
     Dosage: PO
     Route: 048

REACTIONS (16)
  - ALOPECIA [None]
  - AMMONIA INCREASED [None]
  - COLITIS [None]
  - DYSPNOEA [None]
  - HAEMATEMESIS [None]
  - HAEMATURIA [None]
  - HEPATIC CIRRHOSIS [None]
  - MEMORY IMPAIRMENT [None]
  - MUSCLE SPASMS [None]
  - PLATELET COUNT DECREASED [None]
  - RECTAL HAEMORRHAGE [None]
  - RED BLOOD CELL COUNT DECREASED [None]
  - VAGINAL HAEMORRHAGE [None]
  - VISUAL IMPAIRMENT [None]
  - WEIGHT DECREASED [None]
  - WHITE BLOOD CELL COUNT DECREASED [None]
